FAERS Safety Report 10364873 (Version 1)
Quarter: 2014Q3

REPORT INFORMATION
  Report Type: Spontaneous
  Country: US (occurrence: None)
  Receive Date: 20140805
  Receipt Date: 20140805
  Transmission Date: 20150326
  Serious: Yes (Hospitalization)
  Sender: FDA-Public Use
  Company Number: None

PATIENT
  Age: 55 Year
  Sex: Male

DRUGS (4)
  1. LISINOPRIL. [Suspect]
     Active Substance: LISINOPRIL
     Indication: DIZZINESS
     Route: 048
     Dates: start: 20130829
  2. PRAVASTATIN [Suspect]
     Active Substance: PRAVASTATIN\PRAVASTATIN SODIUM
     Indication: DIZZINESS
     Route: 048
     Dates: start: 20130829
  3. AMLODIPINE BESYLATE. [Suspect]
     Active Substance: AMLODIPINE BESYLATE
     Indication: DIZZINESS
     Route: 048
     Dates: start: 20130829
  4. ATENOLOL. [Suspect]
     Active Substance: ATENOLOL
     Indication: DIZZINESS
     Route: 048

REACTIONS (3)
  - Cold sweat [None]
  - Chest pain [None]
  - Dizziness [None]

NARRATIVE: CASE EVENT DATE: 20140611
